FAERS Safety Report 5692992-8 (Version None)
Quarter: 2008Q2

REPORT INFORMATION
  Report Type: 
  Country: None (occurrence: None)
  Receive Date: 20080403
  Receipt Date: 20080321
  Transmission Date: 20081010
  Serious: Yes (Hospitalization)
  Sender: FDA-Public Use
  Company Number: KR-JNJFOC-20080305308

PATIENT
  Age: 44 Year
  Sex: Male
  Weight: 52.9 kg

DRUGS (6)
  1. INFLIXIMAB, RECOMBINANT [Suspect]
     Indication: RHEUMATOID ARTHRITIS
     Route: 042
  2. METHOTREXATE [Suspect]
     Indication: RHEUMATOID ARTHRITIS
     Route: 048
  3. SOLONDO [Suspect]
     Indication: RHEUMATOID ARTHRITIS
     Route: 048
  4. FOLIN [Suspect]
     Indication: RHEUMATOID ARTHRITIS
     Route: 048
  5. PROCTON [Suspect]
     Indication: RHEUMATOID ARTHRITIS
     Route: 048
  6. TEVETEN PLUS [Suspect]
     Indication: HYPERTENSION
     Dosage: DOSE: 1 TAB DAILY
     Route: 048

REACTIONS (2)
  - CHRONIC SINUSITIS [None]
  - FUNGAL INFECTION [None]
